FAERS Safety Report 15775465 (Version 1)
Quarter: 2018Q4

REPORT INFORMATION
  Report Type: Spontaneous
  Country: RS (occurrence: RS)
  Receive Date: 20181231
  Receipt Date: 20181231
  Transmission Date: 20190205
  Serious: Yes (Other)
  Sender: FDA-Public Use
  Company Number: RS-009507513-1812SRB012012

PATIENT

DRUGS (1)
  1. KEYTRUDA [Suspect]
     Active Substance: PEMBROLIZUMAB
     Indication: METASTATIC MALIGNANT MELANOMA
     Dosage: UNK

REACTIONS (5)
  - Malignant neoplasm progression [Unknown]
  - Rash [Unknown]
  - Anaemia [Unknown]
  - Hypothyroidism [Unknown]
  - Neutropenia [Unknown]
